FAERS Safety Report 6517163-4 (Version None)
Quarter: 2009Q4

REPORT INFORMATION
  Report Type: 
  Country: None (occurrence: None)
  Receive Date: 20091223
  Receipt Date: 20091209
  Transmission Date: 20100525
  Serious: Yes (Other)
  Sender: FDA-Public Use
  Company Number: B0617353A

PATIENT
  Age: 59 Year
  Sex: Female

DRUGS (5)
  1. BETAMETHASONE [Suspect]
     Indication: PUSTULAR PSORIASIS
  2. ULTRAVIOLET LIGHT [Suspect]
  3. METHOTREXATE [Suspect]
  4. ACITRETIN [Suspect]
  5. CYCLOSPORINE [Suspect]

REACTIONS (7)
  - ACCIDENTAL OVERDOSE [None]
  - DEPRESSION [None]
  - DERMATITIS EXFOLIATIVE [None]
  - DRUG INEFFECTIVE [None]
  - PSORIASIS [None]
  - PSORIATIC ARTHROPATHY [None]
  - SUICIDAL IDEATION [None]
